FAERS Safety Report 4412050-X (Version None)
Quarter: 2004Q2

REPORT INFORMATION
  Report Type: 
  Country: None (occurrence: None)
  Receive Date: 20040630
  Receipt Date: 20040319
  Transmission Date: 20050107
  Serious: No
  Sender: FDA-Public Use
  Company Number: 04P-163-0254284-00

PATIENT
  Sex: Female

DRUGS (6)
  1. HUMIRA [Suspect]
     Indication: RHEUMATOID ARTHRITIS
     Dosage: 40 MG, 1 IN 2 WK, SUBCUTANEOUS
     Route: 058
     Dates: start: 20030401, end: 20030101
  2. ALENDRONATE SODIUM [Concomitant]
  3. BUCINDOLOL HYDROCHLORIDE [Concomitant]
  4. MEZCLOR [Concomitant]
  5. DIPHENYDRAMINE HYDROCHLORIDE [Concomitant]
  6. ARTHROTEC [Concomitant]

REACTIONS (1)
  - INFECTED CYST [None]
